FAERS Safety Report 21650569 (Version 2)
Quarter: 2022Q4

REPORT INFORMATION
  Report Type: Spontaneous
  Country: US (occurrence: US)
  Receive Date: 20221128
  Receipt Date: 20221221
  Transmission Date: 20230112
  Serious: Yes (Hospitalization)
  Sender: FDA-Public Use
  Company Number: US-PFIZER INC-PV202200110438

PATIENT
  Age: 54 Year
  Sex: Female

DRUGS (1)
  1. IBRANCE [Suspect]
     Active Substance: PALBOCICLIB
     Indication: Breast cancer female
     Dosage: 125 MG, CYCLIC (FOR 21 CONSECUTIVE DAYS FOLLOWED BY 7 DAYS OFF FOR A 28 DAY CYCLE)
     Route: 048
     Dates: start: 20211203

REACTIONS (1)
  - Neoplasm progression [Unknown]
